FAERS Safety Report 7234483-9 (Version None)
Quarter: 2011Q1

REPORT INFORMATION
  Report Type: 
  Country: None (occurrence: None)
  Receive Date: 20110119
  Receipt Date: 20110113
  Transmission Date: 20110831
  Serious: Yes (Other)
  Sender: FDA-Public Use
  Company Number: US-ELI_LILLY_AND_COMPANY-US201101003637

PATIENT
  Sex: Female

DRUGS (3)
  1. HUMALOG MIX 75/25 [Suspect]
     Indication: DIABETES MELLITUS
     Dosage: 90 U, EACH MORNING
  2. HUMALOG MIX 75/25 [Suspect]
     Dosage: 60 U, OTHER
  3. HUMALOG MIX 75/25 [Suspect]
     Dosage: 50 U, EACH EVENING

REACTIONS (5)
  - JOINT INJURY [None]
  - WRIST FRACTURE [None]
  - MUSCULAR WEAKNESS [None]
  - MUSCULOSKELETAL DISORDER [None]
  - FALL [None]
